FAERS Safety Report 5479423-8 (Version None)
Quarter: 2007Q4

REPORT INFORMATION
  Report Type: 
  Country: None (occurrence: None)
  Receive Date: 20071003
  Receipt Date: 20071003
  Transmission Date: 20080405
  Serious: Yes (Hospitalization)
  Sender: FDA-Public Use
  Company Number: None

PATIENT
  Sex: Male
  Weight: 22.4 kg

DRUGS (3)
  1. CYTARABINE [Suspect]
     Dosage: 70 MG  GIVEN INTRATHECALLY
  2. DEXAMETHASONE 0.5MG TAB [Suspect]
     Dosage: 71.5 MG GIVEN Q DAY BID
  3. METHOTREXATE [Suspect]
     Dosage: 12 MG  GIVEN INTRATHECALLY

REACTIONS (11)
  - BLOOD CULTURE POSITIVE [None]
  - BLOOD PRESSURE ABNORMAL [None]
  - CAECITIS [None]
  - CAPILLARY LEAK SYNDROME [None]
  - CARDIO-RESPIRATORY ARREST [None]
  - CLOSTRIDIUM DIFFICILE TOXIN TEST POSITIVE [None]
  - HYPOTENSION [None]
  - PSEUDOMONAS INFECTION [None]
  - RESPIRATORY FAILURE [None]
  - SEPSIS [None]
  - STREPTOCOCCAL IDENTIFICATION TEST POSITIVE [None]
